FAERS Safety Report 8492642-1 (Version None)
Quarter: 2012Q3

REPORT INFORMATION
  Report Type: 
  Country: None (occurrence: None)
  Receive Date: 20120706
  Receipt Date: 20120623
  Transmission Date: 20120928
  Serious: Yes (Other)
  Sender: FDA-Public Use
  Company Number: GB-GLAXOSMITHKLINE-B0812788A

PATIENT

DRUGS (1)
  1. NICOTINE [Suspect]

REACTIONS (1)
  - VIOLENCE-RELATED SYMPTOM [None]
